FAERS Safety Report 25379561 (Version 1)
Quarter: 2025Q2

REPORT INFORMATION
  Report Type: Spontaneous
  Country: IT (occurrence: IT)
  Receive Date: 20250530
  Receipt Date: 20250530
  Transmission Date: 20250717
  Serious: Yes (Other)
  Sender: MYLAN
  Company Number: IT-MYLANLABS-2025M1045489

PATIENT
  Age: 28 Year
  Sex: Male

DRUGS (24)
  1. GEMCITABINE [Suspect]
     Active Substance: GEMCITABINE
     Indication: Angiosarcoma
  2. GEMCITABINE [Suspect]
     Active Substance: GEMCITABINE
     Route: 065
  3. GEMCITABINE [Suspect]
     Active Substance: GEMCITABINE
     Route: 065
  4. GEMCITABINE [Suspect]
     Active Substance: GEMCITABINE
  5. EPIRUBICIN [Suspect]
     Active Substance: EPIRUBICIN
     Indication: Angiosarcoma
  6. EPIRUBICIN [Suspect]
     Active Substance: EPIRUBICIN
     Route: 065
  7. EPIRUBICIN [Suspect]
     Active Substance: EPIRUBICIN
     Route: 065
  8. EPIRUBICIN [Suspect]
     Active Substance: EPIRUBICIN
  9. IFOSFAMIDE [Suspect]
     Active Substance: IFOSFAMIDE
     Indication: Angiosarcoma
  10. IFOSFAMIDE [Suspect]
     Active Substance: IFOSFAMIDE
     Route: 065
  11. IFOSFAMIDE [Suspect]
     Active Substance: IFOSFAMIDE
     Route: 065
  12. IFOSFAMIDE [Suspect]
     Active Substance: IFOSFAMIDE
  13. SIROLIMUS [Suspect]
     Active Substance: SIROLIMUS
     Indication: Angiosarcoma
  14. SIROLIMUS [Suspect]
     Active Substance: SIROLIMUS
     Route: 065
  15. SIROLIMUS [Suspect]
     Active Substance: SIROLIMUS
     Route: 065
  16. SIROLIMUS [Suspect]
     Active Substance: SIROLIMUS
  17. TAXOTERE [Suspect]
     Active Substance: DOCETAXEL
     Indication: Angiosarcoma
  18. TAXOTERE [Suspect]
     Active Substance: DOCETAXEL
     Route: 065
  19. TAXOTERE [Suspect]
     Active Substance: DOCETAXEL
     Route: 065
  20. TAXOTERE [Suspect]
     Active Substance: DOCETAXEL
  21. TRABECTEDIN [Suspect]
     Active Substance: TRABECTEDIN
     Indication: Angiosarcoma
  22. TRABECTEDIN [Suspect]
     Active Substance: TRABECTEDIN
     Route: 065
  23. TRABECTEDIN [Suspect]
     Active Substance: TRABECTEDIN
     Route: 065
  24. TRABECTEDIN [Suspect]
     Active Substance: TRABECTEDIN

REACTIONS (5)
  - Anaemia [Unknown]
  - Neutropenia [Unknown]
  - Thrombocytopenia [Unknown]
  - Drug ineffective [Unknown]
  - Disease progression [Unknown]
